FAERS Safety Report 19902003 (Version 1)
Quarter: 2021Q3

REPORT INFORMATION
  Report Type: Report from Study
  Country: GB (occurrence: GB)
  Receive Date: 20210930
  Receipt Date: 20210930
  Transmission Date: 20211014
  Serious: Yes (Hospitalization, Other)
  Sender: FDA-Public Use
  Company Number: GB-JNJFOC-20210943558

PATIENT

DRUGS (4)
  1. REMICADE [Suspect]
     Active Substance: INFLIXIMAB
     Indication: UVEITIS
     Route: 042
  2. REMICADE [Suspect]
     Active Substance: INFLIXIMAB
     Indication: SCLERITIS
  3. ADALIMUMAB [Suspect]
     Active Substance: ADALIMUMAB
     Indication: UVEITIS
     Route: 065
  4. ADALIMUMAB [Suspect]
     Active Substance: ADALIMUMAB
     Indication: SCLERITIS

REACTIONS (17)
  - Cellulitis [Unknown]
  - Infection [Unknown]
  - Rash [Unknown]
  - Systemic lupus erythematosus [Unknown]
  - Back pain [Unknown]
  - Infusion related reaction [Unknown]
  - Disseminated tuberculosis [Unknown]
  - Anaphylactic reaction [Unknown]
  - Psoriasis [Unknown]
  - Hypersensitivity [Unknown]
  - Fatigue [Unknown]
  - Off label use [Unknown]
  - Product use in unapproved indication [Unknown]
  - Abscess [Unknown]
  - Headache [Unknown]
  - Arthralgia [Unknown]
  - Respiratory tract infection [Unknown]
